FAERS Safety Report 17730740 (Version 2)
Quarter: 2025Q3

REPORT INFORMATION
  Report Type: Spontaneous
  Country: EU (occurrence: EU)
  Receive Date: 20200430
  Receipt Date: 20250710
  Transmission Date: 20251020
  Serious: Yes (Other)
  Sender: MYLAN
  Company Number: EU-VIIV HEALTHCARE LIMITED-IT2020GSK055177

PATIENT

DRUGS (2)
  1. ABACAVIR\LAMIVUDINE [Suspect]
     Active Substance: ABACAVIR\LAMIVUDINE
     Indication: HIV infection
  2. DARUNAVIR\RITONAVIR [Suspect]
     Active Substance: DARUNAVIR\RITONAVIR
     Indication: HIV infection

REACTIONS (3)
  - Viral mutation identified [Unknown]
  - Blood HIV RNA increased [Recovered/Resolved]
  - Pathogen resistance [Unknown]
